FAERS Safety Report 11194951 (Version 1)
Quarter: 2015Q2

REPORT INFORMATION
  Report Type: Spontaneous
  Country: US (occurrence: None)
  Receive Date: 20150615
  Receipt Date: 20150615
  Transmission Date: 20150821
  Serious: No
  Sender: FDA-Public Use
  Company Number: None

PATIENT
  Age: 63 Year
  Sex: Female

DRUGS (2)
  1. SYSTANE EYEDROPS [Concomitant]
     Active Substance: POLYETHYLENE GLYCOL 400\PROPYLENE GLYCOL
  2. LATISSE [Suspect]
     Active Substance: BIMATOPROST

REACTIONS (3)
  - Application site reaction [None]
  - Application site dryness [None]
  - Application site discolouration [None]

NARRATIVE: CASE EVENT DATE: 20150612
